FAERS Safety Report 10956070 (Version 2)
Quarter: 2015Q2

REPORT INFORMATION
  Report Type: Spontaneous
  Country: US (occurrence: US)
  Receive Date: 20150326
  Receipt Date: 20150526
  Transmission Date: 20150821
  Serious: No
  Sender: FDA-Public Use
  Company Number: US-JNJFOC-20130905382

PATIENT
  Sex: Male
  Weight: 70.31 kg

DRUGS (1)
  1. INTELENCE [Suspect]
     Active Substance: ETRAVIRINE
     Indication: HIV INFECTION
     Route: 048
     Dates: start: 2012

REACTIONS (3)
  - Foreign body [Not Recovered/Not Resolved]
  - Dysphagia [Not Recovered/Not Resolved]
  - Choking [Not Recovered/Not Resolved]

NARRATIVE: CASE EVENT DATE: 2012
